FAERS Safety Report 16715483 (Version 1)
Quarter: 2019Q3

REPORT INFORMATION
  Report Type: Spontaneous
  Country: CA (occurrence: CA)
  Receive Date: 20190819
  Receipt Date: 20190819
  Transmission Date: 20191005
  Serious: Yes (Death)
  Sender: FDA-Public Use
  Company Number: CA-PFIZER INC-2019352131

PATIENT
  Age: 59 Year
  Sex: Female

DRUGS (8)
  1. CALCIUM CHLORIDE;GLUCOSE MONOHYDRATE;LACTIC ACID;MAGNESIUM CHLORIDE;PO [Suspect]
     Active Substance: CALCIUM CHLORIDE\DEXTROSE\LACTIC ACID\MAGNESIUM CHLORIDE\POTASSIUM CHLORIDE\SODIUM BICARBONATE\SODIUM CHLORIDE
     Indication: SEPSIS
     Dosage: UNK
     Route: 010
  2. PRISMOCAL [Suspect]
     Active Substance: LACTIC ACID\MAGNESIUM CHLORIDE\SODIUM CARBONATE\SODIUM CHLORIDE
     Indication: SEPSIS
     Dosage: UNK
     Route: 010
  3. PRISMASOL [Suspect]
     Active Substance: DEXTROSE\LACTIC ACID\MAGNESIUM CL\POTASSIUM CL\SODIUM BICARBONATE\SODIUM CL
     Indication: ACUTE KIDNEY INJURY
  4. CALCIUM CHLORIDE;GLUCOSE MONOHYDRATE;LACTIC ACID;MAGNESIUM CHLORIDE;PO [Suspect]
     Active Substance: CALCIUM CHLORIDE\DEXTROSE\LACTIC ACID\MAGNESIUM CHLORIDE\POTASSIUM CHLORIDE\SODIUM BICARBONATE\SODIUM CHLORIDE
     Indication: ACUTE KIDNEY INJURY
  5. POTASSIUM CHLORIDE. [Suspect]
     Active Substance: POTASSIUM CHLORIDE
     Indication: SEPSIS
     Dosage: UNK
     Route: 010
  6. POTASSIUM CHLORIDE. [Suspect]
     Active Substance: POTASSIUM CHLORIDE
     Indication: ACUTE KIDNEY INJURY
  7. PRISMASOL [Suspect]
     Active Substance: DEXTROSE\LACTIC ACID\MAGNESIUM CL\POTASSIUM CL\SODIUM BICARBONATE\SODIUM CL
     Indication: SEPSIS
     Dosage: UNK
     Route: 010
  8. PRISMOCAL [Suspect]
     Active Substance: LACTIC ACID\MAGNESIUM CHLORIDE\SODIUM CARBONATE\SODIUM CHLORIDE
     Indication: ACUTE KIDNEY INJURY

REACTIONS (4)
  - Wrong product administered [Fatal]
  - Death [Fatal]
  - Product dispensing error [Fatal]
  - Blood potassium increased [Fatal]
